FAERS Safety Report 6143506-X (Version None)
Quarter: 2009Q2

REPORT INFORMATION
  Report Type: 
  Country: None (occurrence: None)
  Receive Date: 20090403
  Receipt Date: 20090331
  Transmission Date: 20091009
  Serious: Yes (Hospitalization, Disabling)
  Sender: FDA-Public Use
  Company Number: JP-B.I. PHARMACEUTICALS,INC./RIDGEFIELD-2009-BP-03553NB

PATIENT
  Sex: Male
  Weight: 62 kg

DRUGS (4)
  1. MICARDIS [Suspect]
     Indication: HYPERTENSION
     Dosage: 40MG
     Route: 048
     Dates: start: 20070131
  2. CALBLOCK [Concomitant]
     Indication: HYPERTENSION
     Dosage: 16MG
     Route: 048
     Dates: start: 20070131
  3. ARTIST [Concomitant]
     Indication: HYPERTENSION
     Dosage: 10MG
     Route: 048
     Dates: start: 20080219
  4. CARDENALIN [Concomitant]
     Indication: HYPERTENSION
     Dosage: 2MG
     Route: 048
     Dates: start: 20080221

REACTIONS (2)
  - CONGENITAL CYSTIC KIDNEY DISEASE [None]
  - DIALYSIS DEVICE INSERTION [None]
